FAERS Safety Report 7747304-2 (Version None)
Quarter: 2011Q3

REPORT INFORMATION
  Report Type: 
  Country: None (occurrence: None)
  Receive Date: 20110913
  Receipt Date: 20110909
  Transmission Date: 20111222
  Serious: Yes (Hospitalization, Other)
  Sender: FDA-Public Use
  Company Number: US-MERCK-1012USA02367

PATIENT
  Age: 56 Year
  Sex: Female
  Weight: 74 kg

DRUGS (9)
  1. FOSAMAX [Suspect]
     Indication: OSTEOPOROSIS PROPHYLAXIS
     Route: 048
     Dates: start: 19980101, end: 20001004
  2. FOSAMAX [Suspect]
     Indication: OSTEOPENIA
     Route: 048
     Dates: start: 19980101, end: 20001004
  3. BONIVA [Suspect]
     Indication: OSTEOPENIA
     Route: 042
     Dates: start: 20060101, end: 20100401
  4. FOSAMAX [Suspect]
     Route: 048
     Dates: start: 20010424, end: 20061212
  5. SYNTHROID [Concomitant]
     Indication: HYPOTHYROIDISM
     Route: 065
     Dates: start: 19910101
  6. ACIPHEX [Concomitant]
     Route: 065
     Dates: start: 20000801, end: 20010101
  7. CALCIUM (UNSPECIFIED) [Concomitant]
     Route: 048
     Dates: start: 20000101
  8. NEXIUM [Concomitant]
     Route: 065
     Dates: start: 20020101
  9. FOSAMAX [Suspect]
     Route: 048
     Dates: start: 20010424, end: 20061212

REACTIONS (67)
  - VOMITING [None]
  - NAUSEA [None]
  - GASTRITIS EROSIVE [None]
  - RHINITIS ALLERGIC [None]
  - VITAMIN D DEFICIENCY [None]
  - BURSITIS [None]
  - HAEMATURIA [None]
  - GINGIVAL SWELLING [None]
  - FRACTURE NONUNION [None]
  - OESOPHAGITIS [None]
  - PUBIS FRACTURE [None]
  - LOW TURNOVER OSTEOPATHY [None]
  - DIZZINESS [None]
  - ANAEMIA POSTOPERATIVE [None]
  - VAGINAL FISTULA [None]
  - DIVERTICULUM [None]
  - HYPERLIPIDAEMIA [None]
  - OSTEOARTHRITIS [None]
  - GOITRE [None]
  - LIMB DISCOMFORT [None]
  - FALL [None]
  - ARTHRITIS [None]
  - CHEST PAIN [None]
  - FEMUR FRACTURE [None]
  - DIVERTICULITIS [None]
  - GINGIVITIS [None]
  - MUSCLE STRAIN [None]
  - TONGUE ULCERATION [None]
  - INSOMNIA [None]
  - SACROILIITIS [None]
  - POST PROCEDURAL CONSTIPATION [None]
  - GINGIVAL PAIN [None]
  - TOOTH FRACTURE [None]
  - ARTHRALGIA [None]
  - FOOT FRACTURE [None]
  - HIP FRACTURE [None]
  - DRUG INEFFECTIVE [None]
  - HYPERCHOLESTEROLAEMIA [None]
  - PAIN [None]
  - MUSCULAR WEAKNESS [None]
  - SPINAL OSTEOARTHRITIS [None]
  - SUPRAVENTRICULAR TACHYCARDIA [None]
  - SEBORRHOEIC KERATOSIS [None]
  - ABDOMINAL PAIN LOWER [None]
  - URINARY TRACT INFECTION [None]
  - LENTIGO [None]
  - JOINT INSTABILITY [None]
  - IMPAIRED FASTING GLUCOSE [None]
  - HYPERTHYROIDISM [None]
  - OTITIS MEDIA ACUTE [None]
  - SYNOVITIS [None]
  - PLICA SYNDROME [None]
  - PALPITATIONS [None]
  - ARTHROPATHY [None]
  - ABDOMINAL PAIN [None]
  - POSTOPERATIVE FEVER [None]
  - ANXIETY [None]
  - EAR PRURITUS [None]
  - HAEMATOMA [None]
  - GASTROINTESTINAL ULCER [None]
  - MENISCUS LESION [None]
  - RHEUMATOID ARTHRITIS [None]
  - RENAL CYST [None]
  - PELVIC FRACTURE [None]
  - HYPERTENSION [None]
  - ARRHYTHMIA [None]
  - DEPRESSION [None]
